FAERS Safety Report 8288683-X (Version None)
Quarter: 2012Q2

REPORT INFORMATION
  Report Type: 
  Country: None (occurrence: None)
  Receive Date: 20120417
  Receipt Date: 20120409
  Transmission Date: 20120825
  Serious: Yes (Other)
  Sender: FDA-Public Use
  Company Number: US-AMGEN-USASP2012022307

PATIENT
  Age: 72 Year
  Sex: Female

DRUGS (1)
  1. ENBREL [Suspect]
     Indication: RHEUMATOID ARTHRITIS
     Dosage: 50 MG, 2 TIMES/WK
     Dates: start: 20081001

REACTIONS (11)
  - COUGH [None]
  - NEOPLASM MALIGNANT [None]
  - LUNG DISORDER [None]
  - INFLUENZA [None]
  - NAUSEA [None]
  - VOMITING [None]
  - DECREASED APPETITE [None]
  - OROPHARYNGEAL PAIN [None]
  - HAEMATEMESIS [None]
  - RENAL DISORDER [None]
  - HEADACHE [None]
